FAERS Safety Report 11420933 (Version 2)
Quarter: 2015Q4

REPORT INFORMATION
  Report Type: Spontaneous
  Country: JP (occurrence: JP)
  Receive Date: 20150826
  Receipt Date: 20151019
  Transmission Date: 20160304
  Serious: Yes (Hospitalization)
  Sender: FDA-Public Use
  Company Number: JP-BAYER-2015-406263

PATIENT
  Age: 89 Year
  Sex: Male
  Weight: 48 kg

DRUGS (12)
  1. BAYASPIRIN [Concomitant]
     Active Substance: ASPIRIN
     Indication: MYOCARDIAL INFARCTION
     Dosage: 100 MG, QD
     Route: 048
  2. VENCOLL [Concomitant]
     Indication: CONSTIPATION
     Dosage: 2 DF, QD
     Route: 048
  3. FUROSEMIDE. [Concomitant]
     Active Substance: FUROSEMIDE
     Indication: MYOCARDIAL INFARCTION
     Dosage: 20 MG, QD
     Route: 048
  4. LORATADINE. [Suspect]
     Active Substance: LORATADINE
     Dosage: 10 MG, QD
     Route: 048
     Dates: end: 20150727
  5. MAGNESIUM OXIDE. [Concomitant]
     Active Substance: MAGNESIUM OXIDE
     Indication: CONSTIPATION
     Dosage: 0.5 G, BID
     Route: 048
  6. TICLOPIDINE HYDROCHLORIDE. [Concomitant]
     Active Substance: TICLOPIDINE HYDROCHLORIDE
     Indication: AORTIC ANEURYSM
     Dosage: 100 MG, BID
     Route: 048
  7. ISOCORONAL R AMEL [Concomitant]
     Indication: MYOCARDIAL INFARCTION
     Dosage: 20 MG, BID
     Route: 048
  8. ATORVASTATIN CALCIUM. [Concomitant]
     Active Substance: ATORVASTATIN CALCIUM
     Indication: HYPERCHOLESTEROLAEMIA
     Dosage: 10 MG, QD
     Route: 048
  9. LANSOPRAZOLE. [Concomitant]
     Active Substance: LANSOPRAZOLE
     Indication: AORTIC ANEURYSM
     Dosage: 15 MG, QD
     Route: 048
  10. VALSARTAN. [Concomitant]
     Active Substance: VALSARTAN
     Indication: MYOCARDIAL INFARCTION
     Dosage: 80 MG, QD
  11. CARVEDILOL. [Concomitant]
     Active Substance: CARVEDILOL
     Indication: MYOCARDIAL INFARCTION
     Dosage: 10 MG, QD
     Route: 048
  12. AMPICILLIN SODIUM W/SULBACTAM SODIUM [Concomitant]
     Active Substance: AMPICILLIN SODIUM\SULBACTAM SODIUM
     Indication: BRONCHITIS
     Dosage: 3 G, BID
     Route: 042
     Dates: start: 20150718, end: 20150724

REACTIONS (5)
  - Benign prostatic hyperplasia [Unknown]
  - Bronchitis [Recovering/Resolving]
  - Urinary retention [Unknown]
  - Pneumonia [Recovering/Resolving]
  - Decreased appetite [Unknown]

NARRATIVE: CASE EVENT DATE: 20150717
